FAERS Safety Report 5449741-8 (Version None)
Quarter: 2007Q3

REPORT INFORMATION
  Report Type: 
  Country: None (occurrence: None)
  Receive Date: 20070907
  Receipt Date: 20070907
  Transmission Date: 20080115
  Serious: Yes (Life-Threatening, Hospitalization)
  Sender: FDA-Public Use
  Company Number: None

PATIENT
  Age: 52 Year
  Sex: Female

DRUGS (8)
  1. NAPROXEN [Suspect]
     Indication: HEADACHE
     Dosage: 500MG TID PRN HEADACHE PO
     Route: 048
     Dates: start: 20030101, end: 20070525
  2. IBUPROFEN [Suspect]
     Indication: HEADACHE
     Dosage: 600MG Q6H PRN HEADACHE PO
     Route: 048
     Dates: start: 20030101, end: 20070525
  3. DULOXETINE [Concomitant]
  4. DIVALPROEX SODIUM [Concomitant]
  5. LEVOTHYROXINE SODIUM [Concomitant]
  6. AMLODIPINE [Concomitant]
  7. LABETALOL HCL [Concomitant]
  8. PANTOPRAZOLE SODIUM [Concomitant]

REACTIONS (6)
  - DIZZINESS [None]
  - GASTRIC ULCER [None]
  - HAEMATOCRIT DECREASED [None]
  - HAEMOGLOBIN DECREASED [None]
  - RED BLOOD CELL COUNT DECREASED [None]
  - UPPER GASTROINTESTINAL HAEMORRHAGE [None]
